FAERS Safety Report 6731202-7 (Version None)
Quarter: 2010Q2

REPORT INFORMATION
  Report Type: 
  Country: None (occurrence: None)
  Receive Date: 20100518
  Receipt Date: 20100505
  Transmission Date: 20101027
  Serious: Yes (Death, Hospitalization)
  Sender: FDA-Public Use
  Company Number: US-ELI_LILLY_AND_COMPANY-US201005002008

PATIENT
  Sex: Female

DRUGS (6)
  1. EFFIENT [Suspect]
     Indication: CORONARY ARTERIAL STENT INSERTION
     Dosage: 60 MG, OTHER
     Dates: start: 20100309, end: 20100309
  2. EFFIENT [Suspect]
     Dosage: 60 MG, OTHER
     Dates: start: 20100317, end: 20100317
  3. EFFIENT [Suspect]
     Dosage: 70 MG, DAILY (1/D)
     Dates: start: 20100318, end: 20100318
  4. EFFIENT [Suspect]
     Dosage: 10 MG, DAILY (1/D)
     Dates: start: 20100319, end: 20100327
  5. EFFIENT [Suspect]
     Dosage: 10 MG, DAILY (1/D)
     Dates: start: 20100329, end: 20100329
  6. PLAVIX [Concomitant]
     Dosage: 600 MG, DAILY (1/D)
     Dates: start: 20100317, end: 20100318

REACTIONS (3)
  - DEATH [None]
  - PLATELET FUNCTION TEST ABNORMAL [None]
  - THROMBOSIS IN DEVICE [None]
